FAERS Safety Report 7922306 (Version 2)
Quarter: 2012Q4

REPORT INFORMATION
  Report Type: Spontaneous
  Country: US (occurrence: None)
  Receive Date: 20110408
  Receipt Date: 20120904
  Transmission Date: 20130627
  Serious: Yes (Hospitalization, Other)
  Sender: FDA-Public Use
  Company Number: 2011MA003052

PATIENT
  Sex: Female
  Weight: 141.52 kg

DRUGS (47)
  1. METOCLOPRAMIDE [Suspect]
     Dosage: q 6-8 hr
     Route: 048
     Dates: start: 20090903, end: 20110113
  2. A/B OTIC [Concomitant]
  3. AMOXICILLIN/CLAVULANATE POTASSIUM [Concomitant]
  4. APAP HC [Concomitant]
  5. ASPIRINE [Concomitant]
  6. AVANDAMET [Concomitant]
  7. AVANDIA [Concomitant]
  8. AVAPRO [Concomitant]
  9. AZITHROMYCIN [Concomitant]
  10. BENZONATATE [Concomitant]
  11. CLOTRIMAZOLE/BETAMETHASONE [Concomitant]
  12. PROPOXYPHENE/APAP [Concomitant]
  13. FEXOFENADINE [Concomitant]
  14. FLEXERIL [Concomitant]
  15. FLUCONAZOLE [Concomitant]
  16. BROMFED DM [Concomitant]
  17. CARAFATE [Concomitant]
  18. CEPHALEXIN [Concomitant]
  19. CHERATUSSIN AC [Concomitant]
  20. CIPROFLOXACIN [Concomitant]
  21. FLUTICASONE [Concomitant]
  22. HYDROXYZINE [Concomitant]
  23. IBUPROFEN [Concomitant]
  24. INDOMETHACIN [Concomitant]
  25. LEXAPRO [Concomitant]
  26. LODRANE [Concomitant]
  27. LORTAB [Concomitant]
  28. MAXALT [Concomitant]
  29. MECLIZINE [Concomitant]
  30. METHOCARBAMOL [Concomitant]
  31. METHYLPREDNISOLONE [Concomitant]
  32. MUCINEX DM [Concomitant]
  33. NASONEX [Concomitant]
  34. NAPROXEN [Concomitant]
  35. OMEPRAZOLE [Concomitant]
  36. ONDANSETRON [Concomitant]
  37. PANTOPRAZOLE [Concomitant]
  38. PSEUDO MAX [Concomitant]
  39. SIMVASTATIN [Concomitant]
  40. SINGULAIR [Concomitant]
  41. SUMATRIPTAN [Concomitant]
  42. TOPIRAMATE [Concomitant]
  43. TORADOL [Concomitant]
  44. TRAMADOL [Concomitant]
  45. TRIAMTERENE/HCTZ [Concomitant]
  46. ZOLOFT [Concomitant]
  47. ZYRTEC [Concomitant]

REACTIONS (9)
  - Tardive dyskinesia [None]
  - Extrapyramidal disorder [None]
  - Dyskinesia [None]
  - Tremor [None]
  - Chorea [None]
  - Injury [None]
  - Emotional disorder [None]
  - Family stress [None]
  - Economic problem [None]
